FAERS Safety Report 4383314-3 (Version None)
Quarter: 2004Q2

REPORT INFORMATION
  Report Type: 
  Country: None (occurrence: None)
  Receive Date: 20040618
  Receipt Date: 20040527
  Transmission Date: 20050107
  Serious: Yes (Death)
  Sender: FDA-Public Use
  Company Number: US_0405103328

PATIENT
  Age: 76 Year
  Sex: Male

DRUGS (12)
  1. DOBUTAMINE HCL [Suspect]
     Dates: start: 20020828
  2. TRACLEER [Concomitant]
  3. DIGOXIN [Concomitant]
  4. DEMADEX [Concomitant]
  5. ATACAND [Concomitant]
  6. ZAROXOLYN [Concomitant]
  7. CARDIZEM [Concomitant]
  8. NTG (GLYCERYL TRINITRATE) [Concomitant]
  9. FLOLAN [Concomitant]
  10. WARFARIN SODIUM [Concomitant]
  11. PROBENECID [Concomitant]
  12. COMBIVENT [Concomitant]

REACTIONS (1)
  - ELECTROMECHANICAL DISSOCIATION [None]
